FAERS Safety Report 16583039 (Version 1)
Quarter: 2019Q3

REPORT INFORMATION
  Report Type: Spontaneous
  Country: PR (occurrence: PR)
  Receive Date: 20190717
  Receipt Date: 20190717
  Transmission Date: 20191004
  Serious: No
  Sender: FDA-Public Use
  Company Number: PR-PFIZER INC-2019299723

PATIENT
  Age: 74 Year
  Sex: Female
  Weight: 92 kg

DRUGS (1)
  1. IBRANCE [Suspect]
     Active Substance: PALBOCICLIB
     Indication: BREAST CANCER FEMALE
     Dosage: 125 MG, CYCLIC (1 CAP DAILY FOR 21 DAYS ON, 7DAYS OFF)
     Route: 048

REACTIONS (2)
  - Urinary tract infection [Unknown]
  - White blood cell count decreased [Unknown]
